FAERS Safety Report 8804591 (Version 1)
Quarter: 2012Q4

REPORT INFORMATION
  Report Type: 
  Country: US (occurrence: US)
  Receive Date: 20120923
  Receipt Date: 20120923
  Transmission Date: 20130627
  Serious: No
  Sender: FDA-Public Use
  Company Number: US-009507513-1209USA001931

PATIENT
  Sex: Male

DRUGS (7)
  1. PEGINTRON [Suspect]
     Dosage: UNK
  2. REBETOL [Suspect]
     Dosage: UNK
  3. TELAPREVIR [Suspect]
     Dosage: 750 mg, tid
     Route: 048
  4. ADVAIR [Concomitant]
     Dosage: UNK
  5. COMBIVENT [Concomitant]
     Dosage: UNK
  6. ASPIRIN TABLETS [Concomitant]
     Dosage: UNK
  7. PROCHLORPERAZINE [Concomitant]
     Dosage: UNK

REACTIONS (2)
  - Vomiting [Unknown]
  - Chills [Unknown]
